FAERS Safety Report 10094539 (Version 1)
Quarter: 2014Q2

REPORT INFORMATION
  Report Type: Spontaneous
  Country: US (occurrence: None)
  Receive Date: 20140418
  Receipt Date: 20140418
  Transmission Date: 20141212
  Serious: Yes (Life-Threatening, Hospitalization)
  Sender: FDA-Public Use
  Company Number: UTC-046162

PATIENT
  Age: 37 Year
  Sex: Female
  Weight: 50.8 kg

DRUGS (3)
  1. TYVASO [Suspect]
     Indication: PULMONARY ARTERIAL HYPERTENSION
     Dosage: 18-54 MICROGRAMS (4 IN 1 D)
     Route: 055
     Dates: start: 20120803
  2. REVATIO (SILDENAFIL CITRATE) [Concomitant]
  3. COUMADIN (WARFARIN SODIUM) [Concomitant]

REACTIONS (3)
  - Chest discomfort [None]
  - Dyspnoea [None]
  - Viral infection [None]
